FAERS Safety Report 6661584-6 (Version None)
Quarter: 2010Q1

REPORT INFORMATION
  Report Type: 
  Country: None (occurrence: None)
  Receive Date: 20100331
  Receipt Date: 20090204
  Transmission Date: 20100710
  Serious: Yes (Life-Threatening, Other)
  Sender: FDA-Public Use
  Company Number: US-BRISTOL-MYERS SQUIBB COMPANY-14465439

PATIENT
  Age: 59 Year
  Sex: Female

DRUGS (6)
  1. ERBITUX [Suspect]
     Indication: COLORECTAL CANCER
     Dosage: 770 MG. ONLY RECEIVED 5ML BEFORE REACTION.
     Route: 042
     Dates: start: 20090107, end: 20090107
  2. BENADRYL [Concomitant]
     Indication: PREMEDICATION
     Route: 042
     Dates: start: 20090107
  3. TAGAMET [Concomitant]
     Indication: PREMEDICATION
     Dates: start: 20090107
  4. TYLENOL-500 [Concomitant]
     Indication: PREMEDICATION
     Dates: start: 20090107
  5. ALOXI [Concomitant]
     Indication: PREMEDICATION
     Dates: start: 20090107
  6. DECADRON [Concomitant]
     Indication: PREMEDICATION
     Route: 042
     Dates: start: 20090107

REACTIONS (4)
  - CHEST DISCOMFORT [None]
  - PRURITUS [None]
  - RASH [None]
  - SWOLLEN TONGUE [None]
